FAERS Safety Report 16654075 (Version 2)
Quarter: 2020Q1

REPORT INFORMATION
  Report Type: Report from Study
  Country: US (occurrence: US)
  Receive Date: 20190731
  Receipt Date: 20200131
  Transmission Date: 20200409
  Serious: Yes (Other)
  Sender: FDA-Public Use
  Company Number: US-SANOFI-AVENTIS-2013SA046146

PATIENT
  Age: 50 Year
  Sex: Female

DRUGS (2)
  1. TERIFLUNOMIDE. [Suspect]
     Active Substance: TERIFLUNOMIDE
     Dosage: 14 MG, QD
     Route: 048
     Dates: start: 20130424
  2. TERIFLUNOMIDE. [Suspect]
     Active Substance: TERIFLUNOMIDE
     Indication: MULTIPLE SCLEROSIS
     Dosage: 14 MG, QD
     Route: 048

REACTIONS (12)
  - Cough [Recovering/Resolving]
  - Skin discolouration [Not Recovered/Not Resolved]
  - Fall [Unknown]
  - Spinal pain [Unknown]
  - Alopecia [Not Recovered/Not Resolved]
  - Product dose omission [Not Recovered/Not Resolved]
  - Dizziness [Not Recovered/Not Resolved]
  - Pneumonia [Recovering/Resolving]
  - Hypoaesthesia [Unknown]
  - Pyrexia [Recovering/Resolving]
  - Meniscus injury [Not Recovered/Not Resolved]
  - Arthralgia [Not Recovered/Not Resolved]

NARRATIVE: CASE EVENT DATE: 2007
